FAERS Safety Report 5379073-8 (Version None)
Quarter: 2007Q3

REPORT INFORMATION
  Report Type: 
  Country: None (occurrence: None)
  Receive Date: 20070702
  Receipt Date: 20070620
  Transmission Date: 20080115
  Serious: Yes (Other)
  Sender: FDA-Public Use
  Company Number: 060018K07USA

PATIENT
  Age: 21 Year
  Sex: Female

DRUGS (2)
  1. SEROPHENE [Suspect]
     Indication: ANOVULATORY CYCLE
     Dates: end: 20070101
  2. LETROZOLE [Suspect]

REACTIONS (1)
  - ABORTION SPONTANEOUS [None]
